FAERS Safety Report 5843674-0 (Version None)
Quarter: 2008Q3

REPORT INFORMATION
  Report Type: 
  Country: None (occurrence: None)
  Receive Date: 20080811
  Receipt Date: 20080805
  Transmission Date: 20090109
  Serious: Yes (Death)
  Sender: FDA-Public Use
  Company Number: FABR-1000265

PATIENT
  Age: 51 Year
  Sex: Male
  Weight: 87.7 kg

DRUGS (3)
  1. FABRAZYME [Suspect]
     Indication: FABRY'S DISEASE
     Dosage: 90 MG, Q2W, INTRAVENOUS
     Route: 042
     Dates: start: 20080414, end: 20080528
  2. PERINDOPRIL ERBUMINE [Concomitant]
  3. GABAPENTIN [Concomitant]

REACTIONS (4)
  - FALL [None]
  - MALAISE [None]
  - RESUSCITATION [None]
  - VENTRICULAR FIBRILLATION [None]
